FAERS Safety Report 4750964-1 (Version None)
Quarter: 2005Q3

REPORT INFORMATION
  Report Type: 
  Country: None (occurrence: None)
  Receive Date: 20050822
  Receipt Date: 20050808
  Transmission Date: 20060218
  Serious: Yes (Life-Threatening, Hospitalization)
  Sender: FDA-Public Use
  Company Number: CLOF-10071

PATIENT
  Age: 69 Year
  Sex: Female

DRUGS (10)
  1. CLOFARABINE [Suspect]
     Indication: ACUTE MYELOID LEUKAEMIA
     Dosage: 54 MG IV
     Route: 042
     Dates: start: 20040913, end: 20040917
  2. CLOFARABINE [Suspect]
     Indication: ACUTE MYELOID LEUKAEMIA
     Dosage: 34 MG IV
     Route: 042
     Dates: start: 20041025, end: 20041029
  3. ALLOPURINOL [Concomitant]
  4. DIGOXIN [Concomitant]
  5. LOSARTAN POTASSIUM [Concomitant]
  6. THYROXINE [Concomitant]
  7. PRAVASTATIN [Concomitant]
  8. WARFARIN [Concomitant]
  9. IMDUR [Concomitant]
  10. FUROSEMIDE [Concomitant]

REACTIONS (16)
  - ANAEMIA [None]
  - ANGIOPATHY [None]
  - CARDIAC ARREST [None]
  - CARDIOMEGALY [None]
  - CHILLS [None]
  - DIARRHOEA [None]
  - DIZZINESS [None]
  - DYSPNOEA EXERTIONAL [None]
  - FALL [None]
  - LETHARGY [None]
  - MYOCARDIAL INFARCTION [None]
  - ORTHOSTATIC HYPOTENSION [None]
  - PYREXIA [None]
  - RECTAL HAEMORRHAGE [None]
  - VENTRICULAR FIBRILLATION [None]
  - VOMITING [None]
